FAERS Safety Report 24141710 (Version 2)
Quarter: 2024Q3

REPORT INFORMATION
  Report Type: Spontaneous
  Country: HU (occurrence: HU)
  Receive Date: 20240726
  Receipt Date: 20240802
  Transmission Date: 20241017
  Serious: No
  Sender: MYLAN
  Company Number: HU-MYLANLABS-2024M1068894

PATIENT
  Age: 46 Year
  Sex: Female

DRUGS (1)
  1. INSPRA [Suspect]
     Active Substance: EPLERENONE
     Indication: Chorioretinitis
     Dosage: UNK
     Route: 065
     Dates: start: 20221003

REACTIONS (1)
  - Off label use [Unknown]

NARRATIVE: CASE EVENT DATE: 20221003
